FAERS Safety Report 19293353 (Version 3)
Quarter: 2021Q4

REPORT INFORMATION
  Report Type: Report from Study
  Country: US (occurrence: US)
  Receive Date: 20210524
  Receipt Date: 20211011
  Transmission Date: 20220303
  Serious: Yes (Hospitalization)
  Sender: FDA-Public Use
  Company Number: US-ROCHE-2816931

PATIENT
  Age: 87 Year
  Sex: Female
  Weight: 73.5 kg

DRUGS (9)
  1. ATEZOLIZUMAB [Suspect]
     Active Substance: ATEZOLIZUMAB
     Indication: K-ras gene mutation
     Dosage: DATE OF MOST RECENT DOSE OF ATEZOLIZUMAB PRIOR TO ONSET OF SAE: 30/MAR/2021
     Route: 042
     Dates: start: 20210309
  2. ATEZOLIZUMAB [Suspect]
     Active Substance: ATEZOLIZUMAB
     Indication: Non-small cell lung cancer
  3. AMG-510 [Suspect]
     Active Substance: AMG-510
     Indication: K-ras gene mutation
     Dosage: DATE OF MOST RECENT DOSE OF AMG510 PRIOR TO ONSET OF SAE: 17/APR/2021
     Route: 048
     Dates: start: 20210216
  4. AMG-510 [Suspect]
     Active Substance: AMG-510
     Indication: Non-small cell lung cancer
  5. LYRICA [Concomitant]
     Active Substance: PREGABALIN
     Dates: start: 2020
  6. ZOFRAN [Concomitant]
     Active Substance: ONDANSETRON HYDROCHLORIDE
     Dates: start: 20210401
  7. COLACE [Concomitant]
     Active Substance: DOCUSATE SODIUM
     Dates: start: 20210404
  8. CELEXA [Concomitant]
     Active Substance: CITALOPRAM HYDROBROMIDE
     Dates: start: 20210413
  9. IMODIUM [Concomitant]
     Active Substance: LOPERAMIDE HYDROCHLORIDE
     Dates: start: 20210217

REACTIONS (1)
  - Cerebrovascular accident [Recovered/Resolved]

NARRATIVE: CASE EVENT DATE: 20210417
